FAERS Safety Report 7849982-6 (Version None)
Quarter: 2011Q4

REPORT INFORMATION
  Report Type: 
  Country: None (occurrence: None)
  Receive Date: 20111021
  Receipt Date: 20111014
  Transmission Date: 20120403
  Serious: Yes (Life-Threatening, Hospitalization)
  Sender: FDA-Public Use
  Company Number: AUR-APL-2011-05412

PATIENT
  Age: 52 Year
  Sex: Female

DRUGS (6)
  1. TEMAZEPAM [Suspect]
     Indication: PRODUCT USED FOR UNKNOWN INDICATION
     Dosage: (70 MG), ORAL
     Route: 048
  2. CITALOPRAM HYDROBROMIDE [Suspect]
     Indication: PRODUCT USED FOR UNKNOWN INDICATION
     Dosage: (70 MG), ORAL
     Route: 048
  3. DILTIAZEM [Suspect]
     Indication: PRODUCT USED FOR UNKNOWN INDICATION
     Dosage: (1680 MG), ORAL
     Route: 048
  4. AMITRIPTYLINE HCL [Suspect]
     Indication: PRODUCT USED FOR UNKNOWN INDICATION
     Dosage: (375 MG), ORAL
     Route: 048
  5. DIHYDROCODEINE BITARTRATE INJ [Suspect]
     Indication: PRODUCT USED FOR UNKNOWN INDICATION
     Dosage: (840 MG), ORAL
     Route: 048
  6. DIAZEPAM [Suspect]
     Indication: PRODUCT USED FOR UNKNOWN INDICATION
     Dosage: (35 MG), ORAL
     Route: 048

REACTIONS (9)
  - ATRIOVENTRICULAR BLOCK COMPLETE [None]
  - TOXICITY TO VARIOUS AGENTS [None]
  - RESPIRATORY RATE DECREASED [None]
  - BLOOD PRESSURE DECREASED [None]
  - MULTIPLE DRUG OVERDOSE [None]
  - COMA SCALE ABNORMAL [None]
  - HEART RATE DECREASED [None]
  - HAEMODYNAMIC INSTABILITY [None]
  - PNEUMONIA ASPIRATION [None]
